FAERS Safety Report 8032542-4 (Version None)
Quarter: 2012Q1

REPORT INFORMATION
  Report Type: 
  Country: None (occurrence: None)
  Receive Date: 20120110
  Receipt Date: 20120104
  Transmission Date: 20120608
  Serious: Yes (Death, Hospitalization)
  Sender: FDA-Public Use
  Company Number: DE-AMGEN-DEUSP2011061213

PATIENT
  Age: 64 Year
  Sex: Female
  Weight: 74 kg

DRUGS (6)
  1. OMEPRAZOLE [Concomitant]
     Indication: ABDOMINAL PAIN UPPER
     Dosage: 20 UNK, UNK
  2. BUDESONIDE [Concomitant]
     Indication: ASTHMA
     Dosage: 400 UNK, UNK
  3. TUSSORET [Concomitant]
     Indication: COUGH
  4. FORADIL [Concomitant]
     Indication: ASTHMA
  5. PROLIA [Suspect]
     Indication: OSTEOPOROSIS
     Dosage: UNK
  6. L-THYROXIN 1A PHARMA [Concomitant]
     Indication: HYPERTHYROIDISM
     Dosage: 150 UNK, UNK

REACTIONS (1)
  - METASTASES TO PERITONEUM [None]
